FAERS Safety Report 9018070 (Version 5)
Quarter: 2014Q1

REPORT INFORMATION
  Report Type: Spontaneous
  Country: US (occurrence: US)
  Receive Date: 20130117
  Receipt Date: 20140117
  Transmission Date: 20141002
  Serious: Yes (Hospitalization, Other)
  Sender: FDA-Public Use
  Company Number: US-009507513-1301USA005927

PATIENT
  Sex: Female
  Weight: 61.22 kg

DRUGS (5)
  1. FOSAMAX [Suspect]
     Indication: OSTEOPOROSIS
     Dosage: 70 MG, QW
     Route: 048
     Dates: end: 200704
  2. FOSAMAX [Suspect]
     Dosage: 10 MG, UNK
     Route: 048
  3. RABEPRAZOLE SODIUM [Concomitant]
     Dosage: UNK
     Dates: start: 20021010, end: 20070801
  4. CALCIUM (UNSPECIFIED) (+) VITAMIN D (UNSPECIFIED) [Concomitant]
     Indication: OSTEOPOROSIS
     Dosage: 600 MG/ 200 UNITS, BID W/MEALS
  5. SYNTHROID [Concomitant]
     Indication: HYPOTHYROIDISM
     Dosage: 50-75 MICROGRAM, QAM
     Route: 048

REACTIONS (75)
  - Femur fracture [Recovered/Resolved]
  - Intramedullary rod insertion [Unknown]
  - Removal of internal fixation [Unknown]
  - Spinal fracture [Unknown]
  - Lung neoplasm malignant [Unknown]
  - Rib fracture [Unknown]
  - Fall [Unknown]
  - Lower limb fracture [Unknown]
  - Spinal fracture [Unknown]
  - Spinal compression fracture [Unknown]
  - Renal failure chronic [Not Recovered/Not Resolved]
  - Cerebral infarction [Unknown]
  - Resection of rectum [Unknown]
  - Deep vein thrombosis [Unknown]
  - Low turnover osteopathy [Unknown]
  - Radius fracture [Unknown]
  - Rib fracture [Unknown]
  - Type 1 diabetes mellitus [Unknown]
  - Vitamin D deficiency [Unknown]
  - Adverse event [Unknown]
  - Osteoarthritis [Unknown]
  - Syncope [Unknown]
  - Rib fracture [Unknown]
  - Hysterectomy [Unknown]
  - Essential hypertension [Unknown]
  - Hyperlipidaemia [Unknown]
  - Depression [Not Recovered/Not Resolved]
  - Anxiety [Not Recovered/Not Resolved]
  - Insomnia [Unknown]
  - Cardiac murmur [Unknown]
  - Osteoarthritis [Unknown]
  - Fractured sacrum [Recovered/Resolved]
  - Blood creatinine increased [Unknown]
  - Lung disorder [Not Recovered/Not Resolved]
  - Haemorrhagic anaemia [Unknown]
  - Blood thyroid stimulating hormone decreased [Unknown]
  - Blood parathyroid hormone increased [Unknown]
  - Bronchitis [Recovered/Resolved]
  - Urinary tract infection [Not Recovered/Not Resolved]
  - Fracture [Unknown]
  - Sternal fracture [Unknown]
  - Fracture [Unknown]
  - Gastrointestinal disorder [Unknown]
  - Oophorectomy [Unknown]
  - Device dislocation [Unknown]
  - Diabetes mellitus inadequate control [Unknown]
  - Wound [Unknown]
  - Pulmonary mass [Unknown]
  - Coronary artery disease [Unknown]
  - Peripheral embolism [Unknown]
  - Electrocardiogram abnormal [Unknown]
  - Anaemia [Unknown]
  - Cerebral artery occlusion [Unknown]
  - Gait disturbance [Unknown]
  - Fibromyalgia [Unknown]
  - Spinal osteoarthritis [Unknown]
  - Rheumatoid arthritis [Unknown]
  - Torticollis [Unknown]
  - Nervous system disorder [Unknown]
  - Anal haemorrhage [Unknown]
  - Breast dysplasia [Unknown]
  - Blood pressure increased [Unknown]
  - Proctitis [Unknown]
  - Varicose vein [Unknown]
  - Ecchymosis [Unknown]
  - Musculoskeletal pain [Unknown]
  - Dizziness [Unknown]
  - Muscle spasms [Unknown]
  - Neck pain [Unknown]
  - Bone pain [Unknown]
  - Drug ineffective [Unknown]
  - Nausea [Unknown]
  - Gastrooesophageal reflux disease [Unknown]
  - Constipation [Not Recovered/Not Resolved]
  - Pain in extremity [Not Recovered/Not Resolved]
